FAERS Safety Report 15216158 (Version 1)
Quarter: 2018Q3

REPORT INFORMATION
  Report Type: Spontaneous
  Country: AU (occurrence: AU)
  Receive Date: 20180703
  Receipt Date: 20180703
  Transmission Date: 20181010
  Serious: No
  Sender: FDA-Public Use
  Company Number: None

PATIENT
  Age: 36 Year
  Sex: Female

DRUGS (1)
  1. PICATO [Suspect]
     Active Substance: INGENOL MEBUTATE
     Indication: SOLAR LENTIGO
     Dosage: ?          QUANTITY:2 OINTMENT;?
     Route: 061
     Dates: start: 20170318, end: 20170319

REACTIONS (6)
  - Application site scab [None]
  - Application site reaction [None]
  - Drug administration error [None]
  - Eye swelling [None]
  - Chloasma [None]
  - Blister [None]

NARRATIVE: CASE EVENT DATE: 20170318
